FAERS Safety Report 6188938-9 (Version None)
Quarter: 2009Q2

REPORT INFORMATION
  Report Type: 
  Country: None (occurrence: None)
  Receive Date: 20090513
  Receipt Date: 20090505
  Transmission Date: 20091009
  Serious: Yes (Other)
  Sender: FDA-Public Use
  Company Number: US-GENENTECH-282610

PATIENT
  Sex: Female

DRUGS (11)
  1. XOLAIR [Suspect]
     Indication: ASTHMA
     Dosage: 150 MG, Q4W
     Route: 058
     Dates: start: 20080331, end: 20090424
  2. FEXOFENADINE [Concomitant]
     Indication: DRUG USE FOR UNKNOWN INDICATION
     Dosage: 60 MG, UNK
  3. FORADIL [Concomitant]
     Indication: DRUG USE FOR UNKNOWN INDICATION
     Dosage: UNK
  4. XOPENEX [Concomitant]
     Indication: DRUG USE FOR UNKNOWN INDICATION
  5. ASMANEX TWISTHALER [Concomitant]
     Indication: DRUG USE FOR UNKNOWN INDICATION
  6. XYZAL [Concomitant]
     Indication: DRUG USE FOR UNKNOWN INDICATION
  7. PREVACID [Concomitant]
     Indication: DRUG USE FOR UNKNOWN INDICATION
  8. ZYFLO CR [Concomitant]
     Indication: DRUG USE FOR UNKNOWN INDICATION
  9. NEUROTON [Concomitant]
     Indication: DRUG USE FOR UNKNOWN INDICATION
  10. EPIPEN [Concomitant]
     Indication: DRUG USE FOR UNKNOWN INDICATION
  11. PREVACID [Suspect]

REACTIONS (3)
  - PRURITUS [None]
  - SWELLING [None]
  - WHEEZING [None]
